FAERS Safety Report 5893258-3 (Version None)
Quarter: 2008Q3

REPORT INFORMATION
  Report Type: 
  Country: None (occurrence: None)
  Receive Date: 20080922
  Receipt Date: 20080922
  Transmission Date: 20090109
  Serious: No
  Sender: FDA-Public Use
  Company Number: None

PATIENT
  Sex: Male
  Weight: 102.6 kg

DRUGS (1)
  1. TEMOZOLOMIDE [Suspect]
     Dosage: 2250 MG

REACTIONS (2)
  - LYMPHOPENIA [None]
  - MALIGNANT NEOPLASM PROGRESSION [None]
